FAERS Safety Report 6263750-0 (Version None)
Quarter: 2009Q3

REPORT INFORMATION
  Report Type: 
  Country: None (occurrence: None)
  Receive Date: 20090710
  Receipt Date: 20090702
  Transmission Date: 20100115
  Serious: Yes (Hospitalization, Other)
  Sender: FDA-Public Use
  Company Number: PHHY2009AU22401

PATIENT
  Sex: Male

DRUGS (4)
  1. TEGRETOL [Suspect]
     Indication: CONVULSION
     Dosage: 100 MG, BID
     Route: 048
  2. PHENYTOIN [Concomitant]
     Dosage: 360 MG/DAY
  3. CLONAZEPAM [Concomitant]
     Dosage: 1.5 MG, UNK
  4. CLONAZEPAM [Concomitant]
     Dosage: 1 MG, MIDDAY

REACTIONS (4)
  - CONVULSION [None]
  - DIARRHOEA [None]
  - DYSURIA [None]
  - MICTURITION URGENCY [None]
